FAERS Safety Report 24980904 (Version 1)
Quarter: 2025Q1

REPORT INFORMATION
  Report Type: Spontaneous
  Country: US (occurrence: None)
  Receive Date: 20250215
  Receipt Date: 20250215
  Transmission Date: 20250409
  Serious: Yes (Other)
  Sender: FDA-CTU
  Company Number: None

PATIENT
  Age: 41 Year
  Sex: Female
  Weight: 83.25 kg

DRUGS (8)
  1. DAYVIGO [Suspect]
     Active Substance: LEMBOREXANT
     Indication: Insomnia
     Dosage: OTHER QUANTITY : 1 TABLET(S);?FREQUENCY : AT BEDTIME;?
     Route: 048
     Dates: start: 20250201, end: 20250205
  2. DAYVIGO [Suspect]
     Active Substance: LEMBOREXANT
     Indication: Therapy cessation
  3. MAGNESIUM [Concomitant]
     Active Substance: MAGNESIUM
  4. MELATONIN [Concomitant]
     Active Substance: MELATONIN
  5. VITAMINS [Concomitant]
     Active Substance: VITAMINS
  6. DIETARY SUPPLEMENT [Concomitant]
     Active Substance: DIETARY SUPPLEMENT
  7. LECITHIN [Concomitant]
     Active Substance: LECITHIN
  8. PHENYLALANINE [Concomitant]
     Active Substance: PHENYLALANINE

REACTIONS (9)
  - Insomnia [None]
  - Hallucination, tactile [None]
  - Hallucination, auditory [None]
  - Sleep paralysis [None]
  - Hallucination, visual [None]
  - Mental disorder [None]
  - Abnormal dreams [None]
  - Sleep disorder [None]
  - Rash [None]

NARRATIVE: CASE EVENT DATE: 20250205
